FAERS Safety Report 6409664-4 (Version None)
Quarter: 2009Q4

REPORT INFORMATION
  Report Type: 
  Country: None (occurrence: None)
  Receive Date: 20091020
  Receipt Date: 20091020
  Transmission Date: 20100525
  Serious: Yes (Life-Threatening, Hospitalization, Disabling)
  Sender: FDA-Public Use
  Company Number: None

PATIENT
  Age: 23 Year
  Sex: Female
  Weight: 48.0813 kg

DRUGS (1)
  1. VYVANSE [Suspect]
     Indication: ATTENTION DEFICIT/HYPERACTIVITY DISORDER
     Dosage: 30MIL/70MIL. DAILY
     Dates: start: 20080801, end: 20090601

REACTIONS (12)
  - CONFUSIONAL STATE [None]
  - EYE MOVEMENT DISORDER [None]
  - FEELING ABNORMAL [None]
  - HALLUCINATION [None]
  - HOMELESS [None]
  - HYPOACUSIS [None]
  - IMPAIRED WORK ABILITY [None]
  - LOSS OF EMPLOYMENT [None]
  - MOOD SWINGS [None]
  - PARANOIA [None]
  - PHOTOPSIA [None]
  - VISUAL ACUITY REDUCED [None]
